FAERS Safety Report 7954800-1 (Version None)
Quarter: 2011Q4

REPORT INFORMATION
  Report Type: 
  Country: None (occurrence: None)
  Receive Date: 20111202
  Receipt Date: 20111130
  Transmission Date: 20120403
  Serious: Yes (Death)
  Sender: FDA-Public Use
  Company Number: BR-ABBOTT-11P-020-0879678-00

PATIENT
  Sex: Female
  Weight: 75 kg

DRUGS (3)
  1. UNSPECIFIED MEDICATION [Concomitant]
     Indication: BONE DISORDER
  2. UNSPECIFIED MEDICATION [Concomitant]
     Indication: PAIN
  3. HUMIRA [Suspect]
     Indication: RHEUMATOID ARTHRITIS
     Route: 058
     Dates: start: 20091224

REACTIONS (3)
  - WOUND [None]
  - LEISHMANIASIS [None]
  - INFARCTION [None]
